FAERS Safety Report 4897823-1 (Version None)
Quarter: 2006Q1

REPORT INFORMATION
  Report Type: 
  Country: None (occurrence: None)
  Receive Date: 20060201
  Receipt Date: 20051128
  Transmission Date: 20060701
  Serious: Yes (Hospitalization, Other)
  Sender: FDA-Public Use
  Company Number: US-GLAXOSMITHKLINE-A0583697A

PATIENT
  Age: 85 Year
  Sex: Female

DRUGS (6)
  1. ADVAIR DISKUS 100/50 [Suspect]
     Indication: DRUG USE FOR UNKNOWN INDICATION
     Dosage: 1PUFF TWICE PER DAY
     Route: 055
     Dates: start: 20050801
  2. ATENOLOL [Concomitant]
  3. VITAMINS [Concomitant]
  4. AMITRIPTYLINE HCL [Concomitant]
  5. IRON [Concomitant]
  6. SPIRIVA [Concomitant]

REACTIONS (8)
  - CANDIDIASIS [None]
  - COUGH [None]
  - HYPERHIDROSIS [None]
  - LUNG INFECTION [None]
  - PNEUMONIA [None]
  - PRODUCTIVE COUGH [None]
  - PSEUDOMONAS INFECTION [None]
  - PYREXIA [None]
